FAERS Safety Report 6802091-7 (Version None)
Quarter: 2010Q2

REPORT INFORMATION
  Report Type: 
  Country: None (occurrence: None)
  Receive Date: 20100629
  Receipt Date: 20071127
  Transmission Date: 20101027
  Serious: No
  Sender: FDA-Public Use
  Company Number: US-PFIZER INC-2007064792

PATIENT
  Age: 77 Year
  Sex: Female

DRUGS (15)
  1. MEDROL [Suspect]
     Dates: start: 20070717
  2. SLOW-FE [Suspect]
     Indication: ANAEMIA
     Route: 048
     Dates: start: 20070717
  3. CALCIUM CARBONATE [Concomitant]
  4. VITAMIN D [Concomitant]
     Dates: start: 20070719
  5. ALLEGRA [Concomitant]
  6. ADVAIR DISKUS 100/50 [Concomitant]
  7. COMBIVENT [Concomitant]
  8. CRESTOR [Concomitant]
  9. COZAAR [Concomitant]
  10. MONTELUKAST [Concomitant]
  11. SYNTHROID [Concomitant]
  12. ALL OTHER THERAPEUTIC PRODUCTS [Concomitant]
  13. ACETYLSALICYLIC ACID [Concomitant]
  14. PROTONIX [Concomitant]
  15. VALIUM [Concomitant]

REACTIONS (1)
  - PRURITUS [None]
